FAERS Safety Report 16033655 (Version 1)
Quarter: 2019Q1

REPORT INFORMATION
  Report Type: Spontaneous
  Country: US (occurrence: US)
  Receive Date: 20190305
  Receipt Date: 20190305
  Transmission Date: 20190418
  Serious: No
  Sender: FDA-Public Use
  Company Number: US-IMPAX LABORATORIES, LLC-2018-IPXL-02525

PATIENT
  Age: 67 Year
  Sex: Male

DRUGS (1)
  1. RYTARY [Suspect]
     Active Substance: CARBIDOPA\LEVODOPA
     Indication: PARKINSON^S DISEASE
     Dosage: 23.75/95 MG, THREE CAPSULES, FOUR TIMES A DAY
     Route: 065
     Dates: end: 201807

REACTIONS (5)
  - Treatment noncompliance [Unknown]
  - Drug effect delayed [Unknown]
  - Tremor [Recovering/Resolving]
  - Therapeutic response shortened [Unknown]
  - Drug effect incomplete [Unknown]
